FAERS Safety Report 5376700-6 (Version None)
Quarter: 2007Q2

REPORT INFORMATION
  Report Type: 
  Country: None (occurrence: None)
  Receive Date: 20070629
  Receipt Date: 20070619
  Transmission Date: 20071010
  Serious: Yes (Other)
  Sender: FDA-Public Use
  Company Number: US020337

PATIENT
  Age: 43 Year
  Sex: Male
  Weight: 99.7913 kg

DRUGS (6)
  1. ACTIQ [Suspect]
     Indication: MUSCULOSKELETAL PAIN
     Dosage: 7200 UG QD BUCCAL
     Route: 002
     Dates: end: 20061101
  2. ACTIQ [Suspect]
     Indication: MUSCULOSKELETAL PAIN
     Dosage: 7200 UG QD BUCCAL
     Route: 002
     Dates: start: 20061201
  3. CLONAZEPAM [Concomitant]
  4. AMBIEN [Concomitant]
  5. MORPHINE TIME RELEASE [Concomitant]
  6. FENTORA [Concomitant]

REACTIONS (13)
  - ABDOMINAL PAIN UPPER [None]
  - ABNORMAL DREAMS [None]
  - ANOREXIA [None]
  - CONVULSION [None]
  - DELIRIUM TREMENS [None]
  - DIARRHOEA [None]
  - DRUG DEPENDENCE [None]
  - DRUG PRESCRIBING ERROR [None]
  - DRUG WITHDRAWAL SYNDROME [None]
  - DYSPNOEA [None]
  - FATIGUE [None]
  - MUSCLE SPASMS [None]
  - PAIN IN EXTREMITY [None]
